FAERS Safety Report 14253825 (Version 3)
Quarter: 2018Q3

REPORT INFORMATION
  Report Type: Spontaneous
  Country: US (occurrence: US)
  Receive Date: 20171205
  Receipt Date: 20180807
  Transmission Date: 20181010
  Serious: Yes (Hospitalization, Other)
  Sender: FDA-Public Use
  Company Number: US-DSJP-DSU-2017-145245

PATIENT

DRUGS (2)
  1. BENICAR [Suspect]
     Active Substance: OLMESARTAN MEDOXOMIL
     Indication: HYPERTENSION
     Dosage: 40 MG, QD
     Dates: start: 20080424, end: 20170817
  2. BENICAR HCT [Suspect]
     Active Substance: HYDROCHLOROTHIAZIDE\OLMESARTAN MEDOXOMIL
     Indication: HYPERTENSION
     Dosage: 20?12.5 MG
     Dates: start: 20080424, end: 20170817

REACTIONS (6)
  - Rectal haemorrhage [Unknown]
  - Hiatus hernia [Unknown]
  - Haematochezia [Unknown]
  - Cholecystitis chronic [Recovered/Resolved]
  - Umbilical hernia [Recovered/Resolved]
  - Sprue-like enteropathy [Recovered/Resolved]

NARRATIVE: CASE EVENT DATE: 201603
